FAERS Safety Report 7497924-8 (Version None)
Quarter: 2011Q2

REPORT INFORMATION
  Report Type: 
  Country: None (occurrence: None)
  Receive Date: 20110524
  Receipt Date: 20110512
  Transmission Date: 20111010
  Serious: Yes (Hospitalization)
  Sender: FDA-Public Use
  Company Number: US-BIOGENIDEC-2006BI013958

PATIENT
  Sex: Female

DRUGS (5)
  1. AVONEX [Suspect]
     Route: 030
     Dates: start: 19981111, end: 20030101
  2. IMURAN [Concomitant]
     Dates: start: 20060101, end: 20060501
  3. MECLIZINE [Concomitant]
  4. AVONEX [Suspect]
     Route: 030
     Dates: start: 19971101
  5. AVONEX [Suspect]
     Indication: MULTIPLE SCLEROSIS
     Route: 030
     Dates: start: 20030101

REACTIONS (7)
  - DIABETIC VASCULAR DISORDER [None]
  - INJECTION SITE IRRITATION [None]
  - PAIN IN EXTREMITY [None]
  - INFECTIVE THROMBOSIS [None]
  - LIMB OPERATION [None]
  - THROMBOSIS [None]
  - UVEITIS [None]
